FAERS Safety Report 9789652 (Version 2)
Quarter: 2013Q4

REPORT INFORMATION
  Report Type: Spontaneous
  Country: BR (occurrence: BR)
  Receive Date: 20131231
  Receipt Date: 20131231
  Transmission Date: 20140711
  Serious: Yes (Other)
  Sender: FDA-Public Use
  Company Number: BR-AMGEN-BRASP2013081059

PATIENT
  Age: 53 Year
  Sex: Male
  Weight: 90 kg

DRUGS (3)
  1. ENBREL [Suspect]
     Indication: PSORIASIS
     Dosage: 50 MG, UNK
     Route: 058
     Dates: start: 20131028
  2. GLIFAGE [Concomitant]
     Indication: DIABETES MELLITUS
     Dosage: UNK
  3. PURAN T4 [Concomitant]
     Indication: THYROID DISORDER
     Dosage: UNK

REACTIONS (4)
  - Nervousness [Unknown]
  - Skin injury [Unknown]
  - Product quality issue [Unknown]
  - Pain of skin [Unknown]
